FAERS Safety Report 21116130 (Version 1)
Quarter: 2022Q3

REPORT INFORMATION
  Report Type: Spontaneous
  Country: US (occurrence: US)
  Receive Date: 20220721
  Receipt Date: 20220721
  Transmission Date: 20221026
  Serious: No
  Sender: FDA-Public Use
  Company Number: US-PERRIGO-22US005360

PATIENT
  Sex: Male

DRUGS (2)
  1. MINOXIDIL [Suspect]
     Active Substance: MINOXIDIL
     Indication: Product used for unknown indication
     Dosage: UNKNOWN, UNKNOWN
     Route: 061
     Dates: start: 202110, end: 2022
  2. MINOXIDIL [Suspect]
     Active Substance: MINOXIDIL
     Dosage: UNKNOWN, UNKNOWN
     Route: 061
     Dates: start: 2022

REACTIONS (3)
  - Application site dryness [Unknown]
  - Application site irritation [Unknown]
  - Application site pruritus [Unknown]

NARRATIVE: CASE EVENT DATE: 20220101
